FAERS Safety Report 5907513-1 (Version None)
Quarter: 2008Q4

REPORT INFORMATION
  Report Type: 
  Country: None (occurrence: None)
  Receive Date: 20081003
  Receipt Date: 20080929
  Transmission Date: 20090506
  Serious: Yes (Hospitalization)
  Sender: FDA-Public Use
  Company Number: ES-BRISTOL-MYERS SQUIBB COMPANY-14351563

PATIENT
  Age: 80 Year
  Sex: Female

DRUGS (6)
  1. TRAZODONE HCL [Suspect]
     Indication: DEMENTIA ALZHEIMER'S TYPE
     Route: 048
     Dates: start: 20070615, end: 20071121
  2. ASPIRIN [Suspect]
     Route: 048
     Dates: start: 20021118, end: 20071121
  3. OMEPRAZOLE [Suspect]
     Dates: start: 20070518, end: 20071121
  4. EBIXA [Suspect]
     Indication: DEMENTIA ALZHEIMER'S TYPE
     Dosage: FORMULATION: TAB.
     Route: 048
     Dates: start: 20070615, end: 20071121
  5. EXELON [Suspect]
     Indication: DEMENTIA ALZHEIMER'S TYPE
     Dosage: FORMULATION: CAPSULE
     Route: 048
     Dates: start: 20021118, end: 20071121
  6. LANTUS [Suspect]
     Dates: start: 20070917, end: 20071121

REACTIONS (1)
  - HEPATITIS [None]
